FAERS Safety Report 9101542 (Version 1)
Quarter: 2013Q1

REPORT INFORMATION
  Report Type: Spontaneous
  Country: US (occurrence: None)
  Receive Date: 20130220
  Receipt Date: 20130220
  Transmission Date: 20140127
  Serious: Yes (Disabling)
  Sender: FDA-Public Use
  Company Number: None

PATIENT
  Age: 88 Year
  Sex: Female
  Weight: 69.4 kg

DRUGS (2)
  1. RECLAST [Suspect]
     Indication: OSTEOPOROSIS
     Dosage: INFUSION  YEARLY  IV DRIP?TWO YEARS OF TAKING?04/01/2009  --  04/01/2009
     Route: 041
     Dates: start: 20080401, end: 20090401
  2. PROLIA [Suspect]
     Indication: OSTEOPOROSIS
     Dosage: INJECTION  6 MONTH PERIODS  OTHER?TWO SIX MONTHS PERIODS?04/01/2009  --  04/01/2011

REACTIONS (2)
  - Osteonecrosis of jaw [None]
  - Device failure [None]
